FAERS Safety Report 5375174-9 (Version None)
Quarter: 2007Q2

REPORT INFORMATION
  Report Type: 
  Country: None (occurrence: None)
  Receive Date: 20070629
  Receipt Date: 20061011
  Transmission Date: 20071010
  Serious: No
  Sender: FDA-Public Use
  Company Number: US-ASTRAZENECA-2006UW19757

PATIENT
  Sex: Female

DRUGS (1)
  1. ZOLADEX SAFE SYSTEM [Suspect]
     Indication: ENDOMETRIOSIS
     Route: 058

REACTIONS (2)
  - INFUSION SITE PAIN [None]
  - STOMACH DISCOMFORT [None]
